FAERS Safety Report 20709604 (Version 1)
Quarter: 2022Q2

REPORT INFORMATION
  Report Type: Spontaneous
  Country: US (occurrence: None)
  Receive Date: 20220413
  Receipt Date: 20220413
  Transmission Date: 20220721
  Serious: Yes (Other)
  Sender: FDA-Public Use
  Company Number: None

PATIENT
  Age: 36 Year
  Sex: Male
  Weight: 81 kg

DRUGS (1)
  1. ADDERALL XR [Suspect]
     Active Substance: AMPHETAMINE ASPARTATE\AMPHETAMINE SULFATE\DEXTROAMPHETAMINE SACCHARATE\DEXTROAMPHETAMINE SULFATE

REACTIONS (7)
  - Product availability issue [None]
  - Therapy interrupted [None]
  - Withdrawal syndrome [None]
  - Impaired quality of life [None]
  - Product dispensing error [None]
  - Product dispensing error [None]
  - Headache [None]

NARRATIVE: CASE EVENT DATE: 20220411
